FAERS Safety Report 8130258 (Version 7)
Quarter: 2013Q1

REPORT INFORMATION
  Report Type: Report from Study
  Country: US (occurrence: US)
  Receive Date: 20110912
  Receipt Date: 20130304
  Transmission Date: 20140127
  Serious: Yes (Hospitalization, Other)
  Sender: FDA-Public Use
  Company Number: US-JNJFOC-20110407519

PATIENT
  Age: 43 Year
  Sex: Male
  Weight: 77.7 kg

DRUGS (20)
  1. GOLIMUMAB [Suspect]
     Route: 058
  2. GOLIMUMAB [Suspect]
     Indication: RHEUMATOID ARTHRITIS
     Route: 058
     Dates: start: 20101221, end: 20110318
  3. PLACEBO [Suspect]
     Indication: RHEUMATOID ARTHRITIS
     Route: 058
     Dates: start: 20101221, end: 20110318
  4. HUMALOG [Concomitant]
     Indication: TYPE 1 DIABETES MELLITUS
     Dosage: 7 UNITS
     Route: 058
     Dates: start: 20090122
  5. METHOTREXATE [Concomitant]
     Indication: RHEUMATOID ARTHRITIS
     Route: 048
     Dates: start: 20100727
  6. FOLIC ACID [Concomitant]
     Indication: NUTRITIONAL SUPPLEMENTATION
     Route: 048
     Dates: start: 20100727
  7. VITAMIN D [Concomitant]
     Indication: NUTRITIONAL SUPPLEMENTATION
     Route: 048
     Dates: start: 20100916
  8. DEPAKOTE [Concomitant]
     Indication: DEPRESSION
     Route: 048
     Dates: start: 20091002, end: 20110412
  9. COGENTIN [Concomitant]
     Indication: TREMOR
     Route: 048
     Dates: start: 20090306
  10. KLONOPIN [Concomitant]
     Indication: ANXIETY
     Route: 048
     Dates: start: 20090306
  11. HYDROCODONE [Concomitant]
     Indication: RHEUMATOID ARTHRITIS
     Route: 048
     Dates: start: 200911
  12. DIOVAN [Concomitant]
     Indication: HYPERTENSION
     Route: 048
     Dates: start: 20101223
  13. TRAZODONE [Concomitant]
     Indication: INSOMNIA
     Route: 048
     Dates: start: 20110211
  14. TRAZODONE [Concomitant]
     Indication: DEPRESSION
     Route: 048
     Dates: start: 20110211
  15. PROZAC [Concomitant]
     Indication: DEPRESSION
     Dates: start: 20110419
  16. PROZAC [Concomitant]
     Indication: DEPRESSION
     Dates: start: 20110211, end: 20110418
  17. CYMBALTA [Concomitant]
     Indication: DEPRESSION
     Route: 048
     Dates: start: 200704
  18. LANTUS [Concomitant]
     Indication: TYPE 1 DIABETES MELLITUS
     Dates: start: 201009
  19. ARIPIPRAZOLE [Concomitant]
     Indication: DEPRESSION
     Route: 048
     Dates: start: 20110211
  20. INDERAL [Concomitant]
     Indication: TREMOR
     Route: 048
     Dates: start: 201105

REACTIONS (3)
  - Appendicitis [Recovered/Resolved with Sequelae]
  - Renal failure acute [Recovered/Resolved]
  - Diabetic ketoacidosis [Recovered/Resolved]
